FAERS Safety Report 4888904-7 (Version None)
Quarter: 2005Q4

REPORT INFORMATION
  Report Type: 
  Country: None (occurrence: None)
  Receive Date: 20051216
  Receipt Date: 20050714
  Transmission Date: 20060501
  Serious: No
  Sender: FDA-Public Use
  Company Number: USA0507102839

PATIENT
  Age: 63 Year
  Sex: Male

DRUGS (4)
  1. CIALIS [Suspect]
     Dosage: 20 MG
  2. HUMULIN 70/30 [Concomitant]
  3. AVAPRO [Concomitant]
  4. ACIPHEX [Concomitant]

REACTIONS (1)
  - BLOOD GLUCOSE INCREASED [None]
